FAERS Safety Report 6824117-7 (Version None)
Quarter: 2010Q3

REPORT INFORMATION
  Report Type: 
  Country: None (occurrence: None)
  Receive Date: 20100708
  Receipt Date: 20061004
  Transmission Date: 20110219
  Serious: No
  Sender: FDA-Public Use
  Company Number: US-PFIZER INC-2006123003

PATIENT
  Age: 62 Year
  Sex: Female
  Weight: 52.62 kg

DRUGS (5)
  1. CHANTIX [Suspect]
     Indication: EX-TOBACCO USER
     Dates: start: 20060901
  2. VASOTEC [Concomitant]
     Indication: HYPERTENSION
  3. CATAPRES [Concomitant]
     Indication: HYPERTENSION
     Route: 061
  4. ALPHAGAN [Concomitant]
     Route: 047
  5. ALUPENT [Concomitant]

REACTIONS (2)
  - NAUSEA [None]
  - PSYCHOMOTOR HYPERACTIVITY [None]
